FAERS Safety Report 8573392-X (Version None)
Quarter: 2012Q3

REPORT INFORMATION
  Report Type: 
  Country: None (occurrence: None)
  Receive Date: 20120806
  Receipt Date: 20120728
  Transmission Date: 20120928
  Serious: Yes (Other)
  Sender: FDA-Public Use
  Company Number: US-BRISTOL-MYERS SQUIBB COMPANY-16818825

PATIENT
  Age: 68 Year
  Sex: Female
  Weight: 83 kg

DRUGS (5)
  1. LISINOPRIL [Concomitant]
  2. IPILIMUMAB [Suspect]
     Indication: MALIGNANT MELANOMA
     Dosage: LAST ADMINISTERED ON 13-JUN-2012,10MG/KG OVER 90 MIN
     Route: 042
     Dates: start: 20120523
  3. PRED FORTE [Concomitant]
  4. SYNTHROID [Concomitant]
  5. LIPITOR [Concomitant]

REACTIONS (2)
  - HEARING IMPAIRED [None]
  - UVEITIS [None]
